FAERS Safety Report 6235597-2 (Version None)
Quarter: 2009Q2

REPORT INFORMATION
  Report Type: 
  Country: None (occurrence: None)
  Receive Date: 20090616
  Receipt Date: 20090601
  Transmission Date: 20091009
  Serious: No
  Sender: FDA-Public Use
  Company Number: IDA-00209

PATIENT
  Sex: Female

DRUGS (5)
  1. INDERAL [Suspect]
     Indication: LONG QT SYNDROME
     Dosage: 30 MG TID; TRANSPLACENTAL FORMULATION: TABLET
     Route: 064
     Dates: start: 19970530
  2. MEXITIL [Concomitant]
  3. ... [Concomitant]
  4. .. [Concomitant]
  5. SLOW-K [Concomitant]

REACTIONS (3)
  - HYPOGLYCAEMIA NEONATAL [None]
  - MATERNAL DRUGS AFFECTING FOETUS [None]
  - SMALL FOR DATES BABY [None]
